FAERS Safety Report 15578160 (Version 3)
Quarter: 2021Q1

REPORT INFORMATION
  Report Type: Spontaneous
  Country: FR (occurrence: FR)
  Receive Date: 20181102
  Receipt Date: 20210114
  Transmission Date: 20210419
  Serious: Yes (Hospitalization, Other)
  Sender: FDA-Public Use
  Company Number: FR-ALVOGEN-2018-ALVOGEN-097581

PATIENT
  Age: 70 Year
  Sex: Male

DRUGS (10)
  1. ATORVASTATIN [Suspect]
     Active Substance: ATORVASTATIN
     Indication: HYPERCHOLESTEROLAEMIA
     Route: 048
  2. LERCAN [Suspect]
     Active Substance: LERCANIDIPINE
     Indication: HYPERTENSION
     Route: 048
     Dates: start: 20180911, end: 20180917
  3. XATRAL [Suspect]
     Active Substance: ALFUZOSIN
     Indication: PROSTATOMEGALY
     Route: 048
     Dates: start: 20180911
  4. METFORMIN HYDROCHLORIDE. [Suspect]
     Active Substance: METFORMIN HYDROCHLORIDE
     Indication: TYPE 2 DIABETES MELLITUS
     Route: 048
     Dates: end: 20200917
  5. ELIQUIS [Suspect]
     Active Substance: APIXABAN
     Indication: ATRIAL FLUTTER
     Route: 048
     Dates: start: 20180911, end: 20180917
  6. ATENOLOL. [Suspect]
     Active Substance: ATENOLOL
     Indication: HYPERTENSION
     Route: 048
  7. RANITIDINE. [Suspect]
     Active Substance: RANITIDINE
     Indication: PRODUCT USED FOR UNKNOWN INDICATION
     Route: 048
     Dates: start: 20180911
  8. NOVOMIX [Suspect]
     Active Substance: INSULIN ASPART
     Indication: TYPE 2 DIABETES MELLITUS
     Route: 058
     Dates: end: 20180917
  9. DEXERYL [Concomitant]
     Indication: ECZEMA
     Dosage: 1 ? DAILY
     Route: 030
  10. CANDESARTAN CILEXETIL. [Suspect]
     Active Substance: CANDESARTAN CILEXETIL
     Indication: HYPERTENSION
     Route: 048
     Dates: start: 20180911, end: 20180917

REACTIONS (2)
  - Acute kidney injury [Recovered/Resolved]
  - Off label use [Unknown]

NARRATIVE: CASE EVENT DATE: 20180913
